FAERS Safety Report 6279393-9 (Version None)
Quarter: 2009Q3

REPORT INFORMATION
  Report Type: 
  Country: None (occurrence: None)
  Receive Date: 20090721
  Receipt Date: 20090706
  Transmission Date: 20100115
  Serious: Yes (Other)
  Sender: FDA-Public Use
  Company Number: 2009002018

PATIENT
  Age: 37 Year
  Sex: Female

DRUGS (1)
  1. TARCEVA [Suspect]
     Indication: NON-SMALL CELL LUNG CANCER
     Dosage: (150 MG,QD), ORAL
     Route: 048
     Dates: start: 20080501, end: 20090201

REACTIONS (4)
  - HEPATIC LESION [None]
  - METASTASES TO BONE [None]
  - RASH PAPULAR [None]
  - SPINAL CORD COMPRESSION [None]
